FAERS Safety Report 5443278-8 (Version None)
Quarter: 2007Q2

REPORT INFORMATION
  Report Type: 
  Country: None (occurrence: None)
  Receive Date: 20070423
  Receipt Date: 20070302
  Transmission Date: 20071010
  Serious: Yes (Hospitalization)
  Sender: FDA-Public Use
  Company Number: 200711620

PATIENT
  Age: 64 Year
  Sex: Female
  Weight: 80 kg

DRUGS (1)
  1. IMMUNE GLOBULINE SUBCUTANEOUS (HUMAN) (ZLB BEHRING) [Suspect]
     Indication: HYPOGAMMAGLOBULINAEMIA
     Dosage: 9.6 G Q1W SC
     Route: 058
     Dates: start: 20070227, end: 20070227

REACTIONS (2)
  - NAUSEA [None]
  - VOMITING [None]
